FAERS Safety Report 16582532 (Version 2)
Quarter: 2019Q3

REPORT INFORMATION
  Report Type: Spontaneous
  Country: DE (occurrence: DE)
  Receive Date: 20190717
  Receipt Date: 20190722
  Transmission Date: 20191004
  Serious: Yes (Hospitalization)
  Sender: FDA-Public Use
  Company Number: PHHY2019DE162909

PATIENT
  Age: 85 Year
  Sex: Male

DRUGS (4)
  1. QUETIAPINE. [Suspect]
     Active Substance: QUETIAPINE
     Dosage: 25 MG, QD  (IN FIRST WEEK)
     Route: 065
  2. MELPERONE [Suspect]
     Active Substance: MELPERONE
     Indication: POSTOPERATIVE DELIRIUM
     Dosage: 10 MG, QD (AT NIGHT)
     Route: 065
  3. QUETIAPINE. [Suspect]
     Active Substance: QUETIAPINE
     Indication: POSTOPERATIVE DELIRIUM
     Dosage: 50 MG, QD (AT NIGHT)
     Route: 065
  4. MELPERONE [Suspect]
     Active Substance: MELPERONE
     Dosage: 5 MG, QD ( IN FIRST WEEK)
     Route: 065

REACTIONS (4)
  - Overdose [Recovered/Resolved]
  - Delirium [Unknown]
  - Cognitive disorder [Recovered/Resolved]
  - Somnolence [Recovered/Resolved]
